FAERS Safety Report 8514442-6 (Version None)
Quarter: 2012Q3

REPORT INFORMATION
  Report Type: 
  Country: None (occurrence: None)
  Receive Date: 20120717
  Receipt Date: 20120709
  Transmission Date: 20120928
  Serious: Yes (Hospitalization)
  Sender: FDA-Public Use
  Company Number: US-US-EMD SERONO, INC.-7019883

PATIENT
  Sex: Female

DRUGS (4)
  1. REBIF [Suspect]
     Indication: PRODUCT USED FOR UNKNOWN INDICATION
     Route: 058
     Dates: start: 20100716
  2. BACLOFEN [Concomitant]
  3. TRAMADOL HCL [Concomitant]
  4. SIMVASTATIN [Concomitant]

REACTIONS (7)
  - PYREXIA [None]
  - MUSCLE SPASMS [None]
  - UPPER LIMB FRACTURE [None]
  - DIZZINESS [None]
  - WEIGHT DECREASED [None]
  - FALL [None]
  - CHILLS [None]
